FAERS Safety Report 4269604-3 (Version None)
Quarter: 2004Q1

REPORT INFORMATION
  Report Type: 
  Country: None (occurrence: None)
  Receive Date: 20040112
  Receipt Date: 20040112
  Transmission Date: 20041129
  Serious: Yes (Hospitalization)
  Sender: FDA-Public Use
  Company Number: None

PATIENT
  Age: 51 Year
  Sex: Female

DRUGS (3)
  1. KETOROLAC [Suspect]
     Indication: PAIN
     Dosage: ONCE
  2. LORAZEPAM [Concomitant]
  3. ACIPHEX [Concomitant]

REACTIONS (1)
  - ANAPHYLACTIC REACTION [None]
